FAERS Safety Report 20078695 (Version 4)
Quarter: 2021Q4

REPORT INFORMATION
  Report Type: Spontaneous
  Country: US (occurrence: US)
  Receive Date: 20211117
  Receipt Date: 20211209
  Transmission Date: 20220304
  Serious: Yes (Other)
  Sender: FDA-Public Use
  Company Number: US-ELI_LILLY_AND_COMPANY-US202111004768

PATIENT
  Age: 23 Year
  Sex: Female

DRUGS (9)
  1. BASAGLAR [Suspect]
     Active Substance: INSULIN GLARGINE
     Indication: Type 1 diabetes mellitus
     Dosage: 35 INTERNATIONAL UNIT, DAILY
     Route: 058
  2. BASAGLAR [Suspect]
     Active Substance: INSULIN GLARGINE
     Indication: Type 1 diabetes mellitus
     Dosage: 35 INTERNATIONAL UNIT, DAILY
     Route: 058
  3. BASAGLAR [Suspect]
     Active Substance: INSULIN GLARGINE
     Dosage: 35 INTERNATIONAL UNIT, DAILY
     Route: 058
  4. BASAGLAR [Suspect]
     Active Substance: INSULIN GLARGINE
     Dosage: 35 INTERNATIONAL UNIT, DAILY
     Route: 058
  5. BASAGLAR [Suspect]
     Active Substance: INSULIN GLARGINE
     Dosage: UNK UNK, UNKNOWN
     Route: 065
  6. BASAGLAR [Suspect]
     Active Substance: INSULIN GLARGINE
     Dosage: UNK UNK, UNKNOWN
     Route: 065
  7. BASAGLAR [Suspect]
     Active Substance: INSULIN GLARGINE
     Dosage: UNK UNK, UNKNOWN
     Route: 065
  8. HUMALOG [Suspect]
     Active Substance: INSULIN LISPRO
     Indication: Type 1 diabetes mellitus
     Dosage: UNK UNK, PRN (VIA SLIDING SCALE)
     Route: 058
  9. ADMELOG [Concomitant]
     Active Substance: INSULIN LISPRO
     Indication: Type 1 diabetes mellitus

REACTIONS (5)
  - Diabetic foot [Unknown]
  - Blood glucose increased [Not Recovered/Not Resolved]
  - Paraesthesia [Unknown]
  - Neuropathy peripheral [Unknown]
  - Accidental underdose [Unknown]

NARRATIVE: CASE EVENT DATE: 20211001
